FAERS Safety Report 4688428-6 (Version None)
Quarter: 2005Q2

REPORT INFORMATION
  Report Type: 
  Country: None (occurrence: None)
  Receive Date: 20050609
  Receipt Date: 20050527
  Transmission Date: 20051028
  Serious: Yes (Hospitalization)
  Sender: FDA-Public Use
  Company Number: 2005081853

PATIENT
  Age: 28 Year
  Sex: Female
  Weight: 78 kg

DRUGS (5)
  1. CYTOTEC [Suspect]
     Indication: ABORTION INDUCED
     Dosage: 400 MCG (200 MCG, 2 IN 1 D), ORAL
     Route: 048
     Dates: start: 20050414, end: 20050414
  2. MIFEGYNE (MIFEPRISTONE) [Suspect]
     Indication: ABORTION INDUCED
     Dosage: 600 MG (200 MG, 3 IN 1 D), ORAL
     Route: 048
     Dates: start: 20050411, end: 20050411
  3. AERIUS (DESLORATADINE) [Concomitant]
  4. MONTELUKAST (MONTELUKAST) [Concomitant]
  5. SERETIDE (FLUTICASONE PROPIONATE, SALEMTEROL SINAFOATE) [Concomitant]

REACTIONS (6)
  - DRUG EXPOSURE DURING PREGNANCY [None]
  - OFF LABEL USE [None]
  - RASH [None]
  - STATUS ASTHMATICUS [None]
  - TACHYCARDIA [None]
  - URTICARIA [None]
